FAERS Safety Report 5965639-0 (Version None)
Quarter: 2008Q4

REPORT INFORMATION
  Report Type: 
  Country: None (occurrence: None)
  Receive Date: 20081121
  Receipt Date: 20081121
  Transmission Date: 20090506
  Serious: Yes (Hospitalization)
  Sender: FDA-Public Use
  Company Number: None

PATIENT
  Sex: Male
  Weight: 33.3 kg

DRUGS (1)
  1. CONCERTA [Suspect]
     Indication: ATTENTION DEFICIT/HYPERACTIVITY DISORDER
     Dosage: 36MG DAILY ORAL
     Route: 048
     Dates: start: 20080901, end: 20081101

REACTIONS (4)
  - APLASTIC ANAEMIA [None]
  - CONTUSION [None]
  - ORAL PAIN [None]
  - PANCYTOPENIA [None]
